FAERS Safety Report 18511490 (Version 1)
Quarter: 2020Q4

REPORT INFORMATION
  Report Type: Spontaneous
  Country: US (occurrence: US)
  Receive Date: 20201117
  Receipt Date: 20201117
  Transmission Date: 20210114
  Serious: Yes (Other)
  Sender: FDA-Public Use
  Company Number: US-PFIZER INC-2020188182

PATIENT
  Age: 71 Year
  Sex: Female
  Weight: 121.54 kg

DRUGS (3)
  1. LYRICA [Suspect]
     Active Substance: PREGABALIN
     Dosage: 300 MG, DAILY (TAKE 1 CAPSULE DAILY (TAKING ALONG WITH 100 MG LYRICA ALSO FOR TOTAL OF 400 MG DAILY)
     Route: 048
  2. NEURONTIN [Suspect]
     Active Substance: GABAPENTIN
     Dosage: 300 MG, 2X/DAY (TAKE 1 CAPSULE (300 MG TOTAL) BY MOUTH 2 TIMES A DAY)
     Route: 048
  3. LYRICA [Suspect]
     Active Substance: PREGABALIN
     Dosage: 100 MG, DAILY (TAKE 2 CAPSULES (100 MG TOTAL). TAKING 2 CAPSULES ALONG WITH 300 MG DAILY)
     Route: 048

REACTIONS (1)
  - Cerebrovascular accident [Unknown]
